FAERS Safety Report 12033169 (Version 1)
Quarter: 2016Q1

REPORT INFORMATION
  Report Type: Report from Study
  Country: US (occurrence: US)
  Receive Date: 20160207
  Receipt Date: 20160207
  Transmission Date: 20160526
  Serious: No
  Sender: FDA-Public Use
  Company Number: US-ABBVIE-15K-163-1512829-00

PATIENT
  Age: 66 Year
  Sex: Male
  Weight: 108.96 kg

DRUGS (12)
  1. DURAGESIC [Concomitant]
     Active Substance: FENTANYL
     Indication: PAIN
  2. HYDROCODONE [Concomitant]
     Active Substance: HYDROCODONE
     Indication: SPINAL CORD INJURY
  3. NEURONTIN [Concomitant]
     Active Substance: GABAPENTIN
     Indication: PAIN
  4. BISACODYL. [Concomitant]
     Active Substance: BISACODYL
     Indication: ANAL INCONTINENCE
  5. HUMIRA [Suspect]
     Active Substance: ADALIMUMAB
     Dosage: STARTED ONE WEEK AFTER 80 MG DOSE
     Route: 058
     Dates: start: 2015
  6. DURAGESIC [Concomitant]
     Active Substance: FENTANYL
     Indication: SPINAL CORD INJURY
     Route: 061
  7. HUMIRA [Suspect]
     Active Substance: ADALIMUMAB
     Indication: PSORIASIS
     Dosage: LOADING DOSE
     Route: 058
     Dates: start: 201504, end: 201504
  8. TRAMADOL. [Concomitant]
     Active Substance: TRAMADOL
     Indication: BREAKTHROUGH PAIN
  9. HYDROCODONE [Concomitant]
     Active Substance: HYDROCODONE
     Indication: BREAKTHROUGH PAIN
  10. TRAMADOL. [Concomitant]
     Active Substance: TRAMADOL
     Indication: SPINAL CORD INJURY
  11. FUROSEMIDE. [Concomitant]
     Active Substance: FUROSEMIDE
     Indication: PERIPHERAL SWELLING
  12. NEURONTIN [Concomitant]
     Active Substance: GABAPENTIN
     Indication: NEUROPATHY PERIPHERAL

REACTIONS (1)
  - Drug effect incomplete [Not Recovered/Not Resolved]

NARRATIVE: CASE EVENT DATE: 201504
